FAERS Safety Report 16886131 (Version 1)
Quarter: 2019Q4

REPORT INFORMATION
  Report Type: Spontaneous
  Country: US (occurrence: US)
  Receive Date: 20191004
  Receipt Date: 20191004
  Transmission Date: 20200122
  Serious: No
  Sender: FDA-Public Use
  Company Number: US-BAYER-2019-178480

PATIENT

DRUGS (3)
  1. AMIKACIN. [Concomitant]
     Active Substance: AMIKACIN
     Dosage: UNK
     Route: 042
  2. AVELOX [Suspect]
     Active Substance: MOXIFLOXACIN HYDROCHLORIDE
     Dosage: UNK
     Route: 048
  3. RIFAMPIN. [Concomitant]
     Active Substance: RIFAMPIN
     Dosage: UNK

REACTIONS (1)
  - Therapeutic response decreased [None]

NARRATIVE: CASE EVENT DATE: 2019
